FAERS Safety Report 4669991-8 (Version None)
Quarter: 2005Q2

REPORT INFORMATION
  Report Type: 
  Country: None (occurrence: None)
  Receive Date: 20050523
  Receipt Date: 20050512
  Transmission Date: 20051028
  Serious: Yes (Hospitalization)
  Sender: FDA-Public Use
  Company Number: 2005US000592

PATIENT
  Age: 70 Year
  Sex: Male

DRUGS (6)
  1. PROGRAF [Suspect]
     Indication: PROPHYLAXIS AGAINST TRANSPLANT REJECTION
     Dosage: 1.00 MG BID ORAL
     Route: 048
  2. LEFLUNOMIDE [Concomitant]
  3. PREDNISONE [Concomitant]
  4. NORVASC/DEN/(AMLODIPINE BESILATE) [Concomitant]
  5. PROTONIX [Concomitant]
  6. METOPROLOL SUCCINATE [Concomitant]

REACTIONS (2)
  - LUNG INFILTRATION [None]
  - PULMONARY ALVEOLAR HAEMORRHAGE [None]
